FAERS Safety Report 4504581-9 (Version None)
Quarter: 2004Q4

REPORT INFORMATION
  Report Type: 
  Country: None (occurrence: None)
  Receive Date: 20041116
  Receipt Date: 20041102
  Transmission Date: 20050328
  Serious: Yes (Life-Threatening, Hospitalization)
  Sender: FDA-Public Use
  Company Number: 2004-NL-00159NL

PATIENT
  Age: 69 Year
  Sex: Male

DRUGS (5)
  1. MOVICOX (MELOXICAM) (TA) (MELOXICAM) [Suspect]
     Indication: EXOSTOSIS
     Dosage: 15 MG (15 MG, 1 IN 1 D)
     Dates: start: 20020611, end: 20020617
  2. APROVEL (IRBESARTAN) (TA) [Concomitant]
  3. NORVASC (AMLODIPINE) (TA) [Concomitant]
  4. LIPITOR (ATORVASTATIN) (TAM) [Concomitant]
  5. ACETYLSALICYLIC ACID SRT [Concomitant]

REACTIONS (3)
  - GASTRIC PERFORATION [None]
  - GASTROINTESTINAL HAEMORRHAGE [None]
  - WEIGHT DECREASED [None]
